FAERS Safety Report 9934076 (Version 1)
Quarter: 2014Q1

REPORT INFORMATION
  Report Type: Spontaneous
  Country: US (occurrence: US)
  Receive Date: 20140228
  Receipt Date: 20140228
  Transmission Date: 20141002
  Serious: No
  Sender: FDA-Public Use
  Company Number: US-ABBVIE-13P-163-1059154-00

PATIENT
  Sex: Male
  Weight: 99.88 kg

DRUGS (4)
  1. ANDROGEL [Suspect]
     Indication: BLOOD TESTOSTERONE DECREASED
     Route: 061
     Dates: start: 2007, end: 201206
  2. LEVOTHYROXINE [Concomitant]
     Indication: HYPOTHYROIDISM
  3. ASPIRIN [Concomitant]
     Indication: CARDIAC DISORDER
  4. LOVAZA [Concomitant]
     Indication: BLOOD TRIGLYCERIDES INCREASED

REACTIONS (4)
  - Coronary artery occlusion [Not Recovered/Not Resolved]
  - Cardiac stress test abnormal [Recovered/Resolved]
  - Blood cholesterol increased [Not Recovered/Not Resolved]
  - Blood pressure increased [Recovered/Resolved]
